FAERS Safety Report 6910203-X (Version None)
Quarter: 2010Q3

REPORT INFORMATION
  Report Type: 
  Country: None (occurrence: None)
  Receive Date: 20100806
  Receipt Date: 20100729
  Transmission Date: 20110219
  Serious: Yes (Other)
  Sender: FDA-Public Use
  Company Number: US-PERRIGO-10US011752

PATIENT
  Sex: Female
  Weight: 56.689 kg

DRUGS (2)
  1. CETIRIZINE 10MG 4H2 [Suspect]
     Indication: HYPERSENSITIVITY
     Dosage: 10 MG, QD
     Route: 048
     Dates: start: 20100721, end: 20100722
  2. CETIRIZINE 10MG 4H2 [Suspect]
     Dosage: 10 MG, SINGLE
     Route: 048
     Dates: start: 20100728, end: 20100728

REACTIONS (6)
  - DEHYDRATION [None]
  - DIZZINESS [None]
  - HEADACHE [None]
  - MIGRAINE [None]
  - NAUSEA [None]
  - VOMITING [None]
